FAERS Safety Report 16718986 (Version 4)
Quarter: 2019Q3

REPORT INFORMATION
  Report Type: Spontaneous
  Country: NL (occurrence: NL)
  Receive Date: 20190820
  Receipt Date: 20190919
  Transmission Date: 20191005
  Serious: Yes (Life-Threatening, Hospitalization, Disabling)
  Sender: FDA-Public Use
  Company Number: NL-TEVA-2019-NL-1093925

PATIENT
  Age: 64 Year
  Sex: Male
  Weight: 72 kg

DRUGS (24)
  1. MIRTAZAPINE TABLET, 15 MG (MILLIGRAM [Interacting]
     Active Substance: MIRTAZAPINE
     Dosage: 11 JUNE 2019 7.5 MG
     Dates: start: 20190611, end: 20190625
  2. AMOXI/CLAV 875/125 [Concomitant]
     Dosage: 3DD1
     Dates: start: 20190629, end: 20190706
  3. ETORICOXIB 120MG [Concomitant]
  4. NATRIUMCHLORIDE 9MG/ML [Concomitant]
  5. MAGNESIUMHYDROXYDE 724MG [Concomitant]
     Dosage: 3DD2
  6. DERMOVATE ZALF [Concomitant]
     Dosage: 1DD1
  7. RANITIDINE. [Concomitant]
     Active Substance: RANITIDINE
     Dosage: 2DD1
  8. VITAMINE K DRANK [Concomitant]
  9. PRIVIGEN [Concomitant]
     Active Substance: HUMAN IMMUNOGLOBULIN G
  10. PREDNISOLON CF 5MG [Concomitant]
     Dosage: 2DD1
  11. DULOXETINE 30MG [Concomitant]
     Active Substance: DULOXETINE
     Dosage: 1DD1
  12. ALENDRONINEZUUR AUROBINDO 70MG [Concomitant]
     Dosage: 1XPER WEEK 1
  13. CALC/VIT 500MG/400IE [Concomitant]
     Dosage: 1DD1
  14. MACROGOL 13,7 GRAM [Concomitant]
     Dosage: 3DD1
  15. FLUCONAZOL CAPSULE, 150 MG (MILLIGRAM) [Interacting]
     Active Substance: FLUCONAZOLE
     Indication: INFECTION PROPHYLAXIS
     Dosage: PER WEEK 1 CAPSULE
     Dates: start: 20181009
  16. MIRTAZAPINE TABLET, 15 MG (MILLIGRAM [Suspect]
     Active Substance: MIRTAZAPINE
     Indication: INSOMNIA
     Dosage: NOW SERIOUSLY 15 MG
     Dates: start: 20190626, end: 20190629
  17. TAMSULOSINE 0,4MG CAPS. [Concomitant]
     Dosage: 1DD1
  18. OXYCODON 10MG [Concomitant]
     Dosage: 2DD1
  19. ADRENALINE 1MG/ML [Concomitant]
  20. ZOPICLON RP 7,5MG [Concomitant]
     Dosage: 1DD1
  21. TRAMADOL CF 50MG [Concomitant]
     Dosage: IF NEEDED 6DD1
  22. OXYNORM 10MG [Concomitant]
     Dosage: IF NECESSARY UP TO 6DD1
  23. BUDESONIDE 100MCG [Concomitant]
  24. AMLODIPINE ACCORD 10MG [Concomitant]
     Dosage: 1DD1

REACTIONS (5)
  - Drug interaction [Recovering/Resolving]
  - Somnolence [Recovering/Resolving]
  - Hyperhidrosis [Recovering/Resolving]
  - Feeling cold [Recovering/Resolving]
  - Body temperature decreased [Recovering/Resolving]

NARRATIVE: CASE EVENT DATE: 20190629
